FAERS Safety Report 5759950-6 (Version None)
Quarter: 2008Q2

REPORT INFORMATION
  Report Type: 
  Country: None (occurrence: None)
  Receive Date: 20080605
  Receipt Date: 20080502
  Transmission Date: 20081010
  Serious: Yes (Death)
  Sender: FDA-Public Use
  Company Number: FR-ROCHE-568185

PATIENT
  Sex: Female

DRUGS (3)
  1. ROCEPHIN [Suspect]
     Indication: DRUG USE FOR UNKNOWN INDICATION
     Dosage: FORM:INJECTABLE SOLUTION
     Route: 042
     Dates: start: 20080329, end: 20080409
  2. VANCOMYCIN HCL [Suspect]
     Indication: DRUG USE FOR UNKNOWN INDICATION
     Route: 042
     Dates: start: 20080401, end: 20080411
  3. LOVENOX [Suspect]
     Indication: DRUG USE FOR UNKNOWN INDICATION
     Route: 042
     Dates: start: 20080319, end: 20080420

REACTIONS (1)
  - THROMBOCYTOPENIA [None]
